FAERS Safety Report 22077950 (Version 1)
Quarter: 2023Q1

REPORT INFORMATION
  Report Type: Spontaneous
  Country: US (occurrence: None)
  Receive Date: 20230308
  Receipt Date: 20230308
  Transmission Date: 20230418
  Serious: No
  Sender: FDA-Public Use
  Company Number: None

PATIENT
  Age: 73 Year
  Sex: Male
  Weight: 58.88 kg

DRUGS (6)
  1. CAPECITABINE [Suspect]
     Active Substance: CAPECITABINE
     Indication: Gastric cancer
     Dosage: 1000MG TWICE A DAY ORAL
     Route: 048
     Dates: end: 20230308
  2. PEPCID [Concomitant]
     Active Substance: FAMOTIDINE
  3. TAMSULOSIN [Concomitant]
     Active Substance: TAMSULOSIN
  4. TRAMADOL [Concomitant]
     Active Substance: TRAMADOL
  5. FINASTERIDE [Concomitant]
     Active Substance: FINASTERIDE
  6. VITAMINS [Concomitant]
     Active Substance: VITAMINS

REACTIONS (1)
  - Hospice care [None]
